FAERS Safety Report 14307135 (Version 1)
Quarter: 2017Q4

REPORT INFORMATION
  Report Type: Spontaneous
  Country: IT (occurrence: IT)
  Receive Date: 20171220
  Receipt Date: 20171220
  Transmission Date: 20180321
  Serious: Yes (Other)
  Sender: FDA-Public Use
  Company Number: IT-BAUSCH-BL-2017-034888

PATIENT
  Age: 69 Year
  Sex: Male

DRUGS (7)
  1. BEVACIZUMAB. [Suspect]
     Active Substance: BEVACIZUMAB
     Indication: METASTASES TO LIVER
     Dosage: EVERY CYCLE
     Route: 065
     Dates: start: 201205, end: 201205
  2. 5-FU [Suspect]
     Active Substance: FLUOROURACIL
     Dosage: 46 HOURS CONTINUING INFUSION, EVERY CYCLE
     Route: 042
     Dates: start: 201205, end: 201205
  3. 5-FU [Suspect]
     Active Substance: FLUOROURACIL
     Dosage: EVERY CYCLE
     Route: 040
  4. OXALIPLATIN. [Suspect]
     Active Substance: OXALIPLATIN
     Indication: METASTASES TO LIVER
     Dosage: EVERY CYCLE
     Route: 065
     Dates: start: 201205, end: 201205
  5. 5-FU [Suspect]
     Active Substance: FLUOROURACIL
     Indication: METASTASES TO LIVER
     Dosage: EVERY CYCLE
     Route: 040
     Dates: start: 201205, end: 201205
  6. 5-FU [Suspect]
     Active Substance: FLUOROURACIL
     Dosage: EVERY CYCLE
     Route: 040
  7. LEUCOVORIN. [Suspect]
     Active Substance: LEUCOVORIN
     Indication: METASTASES TO LIVER
     Dosage: EVERY CYCLE
     Route: 065
     Dates: start: 201205, end: 201205

REACTIONS (1)
  - Therapeutic response decreased [Unknown]
